FAERS Safety Report 14543641 (Version 2)
Quarter: 2018Q3

REPORT INFORMATION
  Report Type: Spontaneous
  Country: US (occurrence: US)
  Receive Date: 20180216
  Receipt Date: 20180811
  Transmission Date: 20181010
  Serious: Yes (Hospitalization)
  Sender: FDA-Public Use
  Company Number: US-VIFOR (INTERNATIONAL) INC.-VIT-2018-00940

PATIENT
  Age: 65 Year
  Sex: Female
  Weight: 62.65 kg

DRUGS (16)
  1. FERROUS SULFATE. [Concomitant]
     Active Substance: FERROUS SULFATE
  2. DOCOSAHEXAENOIC ACID~~EICOSAPENTAENOIC ACID [Concomitant]
  3. SERTRALINE HYDROCHLORIDE. [Concomitant]
     Active Substance: SERTRALINE HYDROCHLORIDE
  4. METOPROLOL TARTRATE. [Concomitant]
     Active Substance: METOPROLOL TARTRATE
  5. VACCINIUM MACROCARPON [Concomitant]
     Active Substance: CRANBERRY
  6. HUMALOG [Concomitant]
     Active Substance: INSULIN LISPRO
  7. LASIX [Concomitant]
     Active Substance: FUROSEMIDE
  8. LIPITOR [Concomitant]
     Active Substance: ATORVASTATIN CALCIUM
  9. AMLODIPINE BESILATE [Concomitant]
     Active Substance: AMLODIPINE BESYLATE
  10. FISH OIL [Concomitant]
     Active Substance: FISH OIL
  11. LANTUS SOLOSTAR [Concomitant]
     Active Substance: INSULIN GLARGINE
  12. VELTASSA [Suspect]
     Active Substance: PATIROMER
     Indication: HYPERKALAEMIA
     Route: 048
     Dates: start: 20170525
  13. DULCOLAX NOS [Concomitant]
     Active Substance: BISACODYL OR DOCUSATE SODIUM
  14. GABAPENTIN. [Concomitant]
     Active Substance: GABAPENTIN
  15. LINZESS [Concomitant]
     Active Substance: LINACLOTIDE
  16. COLACE [Concomitant]
     Active Substance: DOCUSATE SODIUM

REACTIONS (2)
  - Fall [Recovered/Resolved]
  - Upper limb fracture [Recovered/Resolved]

NARRATIVE: CASE EVENT DATE: 201711
